FAERS Safety Report 5355482-8 (Version None)
Quarter: 2007Q2

REPORT INFORMATION
  Report Type: 
  Country: None (occurrence: None)
  Receive Date: 20070613
  Receipt Date: 20070531
  Transmission Date: 20071010
  Serious: Yes (Other)
  Sender: FDA-Public Use
  Company Number: IT-BAYER-200713087GDS

PATIENT
  Age: 63 Year
  Sex: Male
  Weight: 92 kg

DRUGS (6)
  1. SORAFENIB [Suspect]
     Indication: RENAL CELL CARCINOMA STAGE UNSPECIFIED
     Route: 048
     Dates: start: 20061002, end: 20070503
  2. SORAFENIB [Suspect]
     Route: 048
     Dates: start: 20070507, end: 20070517
  3. INTERFERON [Suspect]
     Indication: RENAL CELL CARCINOMA STAGE UNSPECIFIED
     Route: 065
  4. LOSEC [Concomitant]
     Indication: PROPHYLAXIS AGAINST GASTROINTESTINAL ULCER
     Dosage: TOTAL DAILY DOSE: 40 MG
     Route: 065
     Dates: start: 20061017
  5. TINSET [Concomitant]
     Indication: DRUG USE FOR UNKNOWN INDICATION
     Route: 065
     Dates: start: 20061031, end: 20070515
  6. FULCRO [Concomitant]
     Indication: ILL-DEFINED DISORDER
     Route: 065
     Dates: start: 20061222

REACTIONS (1)
  - CEREBRAL ISCHAEMIA [None]
